FAERS Safety Report 10842580 (Version 1)
Quarter: 2015Q1

REPORT INFORMATION
  Report Type: Report from Study
  Country: US (occurrence: US)
  Receive Date: 20150220
  Receipt Date: 20150220
  Transmission Date: 20150721
  Serious: No
  Sender: FDA-Public Use
  Company Number: US-ABBVIE-14P-163-1280481-00

PATIENT
  Age: 15 Year
  Sex: Female

DRUGS (3)
  1. HUMIRA [Suspect]
     Active Substance: ADALIMUMAB
     Indication: RHEUMATOID ARTHRITIS
     Dates: start: 201009
  2. METHOTREXATE [Suspect]
     Active Substance: METHOTREXATE
     Indication: PRODUCT USED FOR UNKNOWN INDICATION
  3. METHOTREXATE [Suspect]
     Active Substance: METHOTREXATE

REACTIONS (9)
  - Incorrect dose administered [Unknown]
  - Peripheral swelling [Recovered/Resolved]
  - Alopecia [Recovered/Resolved]
  - Drug dose omission [Unknown]
  - Joint swelling [Unknown]
  - Arthralgia [Unknown]
  - Viral infection [Recovered/Resolved]
  - Device issue [Unknown]
  - Injection site pain [Recovered/Resolved]

NARRATIVE: CASE EVENT DATE: 201009
